FAERS Safety Report 18957145 (Version 1)
Quarter: 2021Q1

REPORT INFORMATION
  Report Type: Spontaneous
  Country: US (occurrence: US)
  Receive Date: 20210302
  Receipt Date: 20210302
  Transmission Date: 20210420
  Serious: No
  Sender: FDA-Public Use
  Company Number: US-ASTRAZENECA-2021A081346

PATIENT
  Sex: Male
  Weight: 133.8 kg

DRUGS (1)
  1. BYDUREON [Suspect]
     Active Substance: EXENATIDE
     Indication: BLOOD GLUCOSE ABNORMAL
     Route: 065
     Dates: start: 2019

REACTIONS (2)
  - Incorrect dose administered by device [Not Recovered/Not Resolved]
  - Device malfunction [Not Recovered/Not Resolved]
